FAERS Safety Report 12213145 (Version 1)
Quarter: 2016Q1

REPORT INFORMATION
  Report Type: Spontaneous
  Country: US (occurrence: None)
  Receive Date: 20160325
  Receipt Date: 20160325
  Transmission Date: 20160526
  Serious: Yes (Hospitalization)
  Sender: FDA-Public Use
  Company Number: None

PATIENT
  Age: 71 Year
  Sex: Male
  Weight: 102.06 kg

DRUGS (2)
  1. ALPRURINAL [Concomitant]
  2. RITUXAN [Suspect]
     Active Substance: RITUXIMAB
     Indication: LEUKAEMIA
     Dosage: INTO A  VEIN
     Route: 042
     Dates: start: 20160310, end: 20160310

REACTIONS (11)
  - Chills [None]
  - Mouth ulceration [None]
  - Asthenia [None]
  - Pharyngeal ulceration [None]
  - Oedema [None]
  - Confusional state [None]
  - Tremor [None]
  - Pharyngeal oedema [None]
  - Dizziness [None]
  - Dyspnoea [None]
  - Pyrexia [None]

NARRATIVE: CASE EVENT DATE: 20160310
